FAERS Safety Report 13475937 (Version 2)
Quarter: 2017Q3

REPORT INFORMATION
  Report Type: Report from Study
  Country: US (occurrence: US)
  Receive Date: 20170424
  Receipt Date: 20170728
  Transmission Date: 20171127
  Serious: No
  Sender: FDA-Public Use
  Company Number: US-AMGEN-USASP2017011867

PATIENT
  Age: 74 Year
  Sex: Male

DRUGS (1)
  1. REPATHA [Suspect]
     Active Substance: EVOLOCUMAB
     Indication: BLOOD CHOLESTEROL ABNORMAL
     Dosage: 140 MG, Q2WK
     Route: 065
     Dates: end: 201612

REACTIONS (5)
  - Musculoskeletal pain [Unknown]
  - Back pain [Recovering/Resolving]
  - Mobility decreased [Unknown]
  - Diarrhoea [Recovering/Resolving]
  - Pain [Unknown]
